FAERS Safety Report 5951867-7 (Version None)
Quarter: 2008Q4

REPORT INFORMATION
  Report Type: 
  Country: None (occurrence: None)
  Receive Date: 20081113
  Receipt Date: 20081106
  Transmission Date: 20090506
  Serious: Yes (Death, Life-Threatening, Hospitalization, Other)
  Sender: FDA-Public Use
  Company Number: US-ELI_LILLY_AND_COMPANY-US200811001380

PATIENT
  Sex: Male

DRUGS (1)
  1. HUMALOG [Suspect]
     Dates: start: 20050101

REACTIONS (9)
  - COMA [None]
  - FALL [None]
  - HAEMORRHAGE [None]
  - HOSPITALISATION [None]
  - PERIPHERAL VASCULAR DISORDER [None]
  - RENAL FAILURE [None]
  - RESPIRATORY ARREST [None]
  - ROTATOR CUFF SYNDROME [None]
  - SCREAMING [None]
